FAERS Safety Report 7286856-6 (Version None)
Quarter: 2011Q1

REPORT INFORMATION
  Report Type: 
  Country: None (occurrence: None)
  Receive Date: 20110211
  Receipt Date: 20110131
  Transmission Date: 20110831
  Serious: Yes (Hospitalization)
  Sender: FDA-Public Use
  Company Number: BR-ROCHE-724053

PATIENT
  Sex: Female
  Weight: 60 kg

DRUGS (14)
  1. METHOTREXATE [Concomitant]
  2. TOCILIZUMAB [Suspect]
     Indication: RHEUMATOID ARTHRITIS
     Dosage: FORM; INFUSION
     Route: 042
     Dates: start: 20100625, end: 20100625
  3. TOCILIZUMAB [Suspect]
     Route: 042
     Dates: start: 20101001, end: 20101001
  4. AMITRIPTYLINE HYDROCHLORIDE [Concomitant]
  5. TOCILIZUMAB [Suspect]
     Route: 042
     Dates: start: 20101101, end: 20101101
  6. SOLU-MEDROL [Concomitant]
  7. FOLIC ACID [Concomitant]
  8. TOCILIZUMAB [Suspect]
     Route: 042
     Dates: start: 20100728, end: 20100728
  9. TOCILIZUMAB [Suspect]
     Route: 042
     Dates: start: 20100901, end: 20100901
  10. ALENDRONATE SODIUM [Concomitant]
  11. RIVOTRIL [Concomitant]
  12. TOCILIZUMAB [Suspect]
     Route: 042
     Dates: start: 20110111
  13. NAPROXENO [Concomitant]
     Indication: PAIN
  14. TOCILIZUMAB [Suspect]
     Route: 042
     Dates: start: 20101222, end: 20101222

REACTIONS (3)
  - PAIN IN EXTREMITY [None]
  - INTRACRANIAL ANEURYSM [None]
  - HEADACHE [None]
